FAERS Safety Report 5767729-4 (Version None)
Quarter: 2008Q2

REPORT INFORMATION
  Report Type: 
  Country: None (occurrence: None)
  Receive Date: 20080610
  Receipt Date: 20080522
  Transmission Date: 20081010
  Serious: Yes (Other)
  Sender: FDA-Public Use
  Company Number: 2008S1008878

PATIENT
  Age: 53 Year
  Sex: Female
  Weight: 60 kg

DRUGS (2)
  1. ESTRADIOL [Suspect]
     Dosage: 0.025 MG; DAILY; TRANSDERMAL
     Route: 062
     Dates: start: 20080217, end: 20080323
  2. VIVELLE-DOT [Suspect]
     Dosage: 0.025 MG;DAILY; TRANSDERMAL
     Route: 062
     Dates: start: 20080217, end: 20080323

REACTIONS (2)
  - ENDOMETRIAL HYPERTROPHY [None]
  - UTERINE POLYP [None]
